FAERS Safety Report 20060631 (Version 2)
Quarter: 2021Q4

REPORT INFORMATION
  Report Type: Spontaneous
  Country: JP (occurrence: JP)
  Receive Date: 20211112
  Receipt Date: 20211206
  Transmission Date: 20220303
  Serious: Yes (Other)
  Sender: FDA-Public Use
  Company Number: JP-TAKEDA-2021TJP018205

PATIENT
  Age: 70 Year
  Sex: Male
  Weight: 51 kg

DRUGS (14)
  1. VECTIBIX [Suspect]
     Active Substance: PANITUMUMAB
     Indication: Rectal cancer
     Dosage: 320 MILLIGRAM, Q2WEEKS
     Route: 042
     Dates: start: 20200129
  2. VECTIBIX [Suspect]
     Active Substance: PANITUMUMAB
     Dosage: 280 MILLIGRAM, Q2WK
     Route: 042
     Dates: start: 20200930
  3. VECTIBIX [Suspect]
     Active Substance: PANITUMUMAB
     Dosage: 280 MILLIGRAM, Q2WK
     Route: 042
     Dates: start: 20210616
  4. OXALIPLATIN [Suspect]
     Active Substance: OXALIPLATIN
     Indication: Product used for unknown indication
     Dosage: 130 MILLIGRAM, Q2WEEKS
     Route: 042
     Dates: start: 20200129
  5. OXALIPLATIN [Suspect]
     Active Substance: OXALIPLATIN
     Dosage: 120 MILLIGRAM, Q2WEEKS
     Route: 042
     Dates: start: 20200930
  6. OXALIPLATIN [Suspect]
     Active Substance: OXALIPLATIN
     Dosage: 130 MILLIGRAM, Q2WEEKS
     Route: 042
     Dates: start: 20201028
  7. OXALIPLATIN [Suspect]
     Active Substance: OXALIPLATIN
     Dosage: 100 MILLIGRAM, Q2WEEKS
     Route: 042
     Dates: start: 20210127
  8. FLUOROURACIL [Suspect]
     Active Substance: FLUOROURACIL
     Indication: Product used for unknown indication
     Dosage: 3800 MILLIGRAM
     Route: 042
     Dates: start: 20200129
  9. FLUOROURACIL [Suspect]
     Active Substance: FLUOROURACIL
     Dosage: 640 MILLIGRAM
     Route: 040
     Dates: start: 20200129
  10. FLUOROURACIL [Suspect]
     Active Substance: FLUOROURACIL
     Dosage: 3600 MILLIGRAM, Q2WEEKS
     Route: 042
     Dates: start: 20200930
  11. FLUOROURACIL [Suspect]
     Active Substance: FLUOROURACIL
     Dosage: 3800 MILLIGRAM, Q2WEEKS
     Route: 042
     Dates: start: 20201028
  12. LEVOLEUCOVORIN CALCIUM [Suspect]
     Active Substance: LEVOLEUCOVORIN CALCIUM
     Indication: Product used for unknown indication
     Dosage: 320 MILLIGRAM
     Route: 065
     Dates: start: 20200129
  13. LEVOLEUCOVORIN CALCIUM [Suspect]
     Active Substance: LEVOLEUCOVORIN CALCIUM
     Dosage: 300 MILLIGRAM
     Route: 065
     Dates: start: 20200930
  14. LEVOLEUCOVORIN CALCIUM [Suspect]
     Active Substance: LEVOLEUCOVORIN CALCIUM
     Dosage: 310 MILLIGRAM
     Route: 065
     Dates: start: 20201028

REACTIONS (3)
  - Interstitial lung disease [Not Recovered/Not Resolved]
  - Peripheral sensory neuropathy [Unknown]
  - Neutrophil count decreased [Unknown]

NARRATIVE: CASE EVENT DATE: 20200925
